FAERS Safety Report 16279804 (Version 1)
Quarter: 2019Q2

REPORT INFORMATION
  Report Type: Spontaneous
  Country: US (occurrence: US)
  Receive Date: 20190507
  Receipt Date: 20190507
  Transmission Date: 20190711
  Serious: Yes (Hospitalization)
  Sender: FDA-Public Use
  Company Number: US-SUN PHARMACEUTICAL INDUSTRIES LTD-2019R1-207087

PATIENT
  Age: 33 Year
  Sex: Male

DRUGS (1)
  1. LOPERAMIDE [Suspect]
     Active Substance: LOPERAMIDE
     Indication: PAIN
     Dosage: UNK, }100MG DAILY
     Route: 065

REACTIONS (11)
  - Cardiotoxicity [Unknown]
  - Sinus bradycardia [Recovered/Resolved]
  - Torsade de pointes [Recovered/Resolved]
  - Atrioventricular block first degree [Recovered/Resolved]
  - Electrocardiogram QT prolonged [Recovered/Resolved]
  - Ejection fraction decreased [Unknown]
  - Electrocardiogram QRS complex prolonged [Recovered/Resolved]
  - Cardiac arrest [Unknown]
  - Ventricular dyskinesia [Unknown]
  - Drug abuse [Unknown]
  - Mental status changes [Unknown]
